FAERS Safety Report 7375468-1 (Version None)
Quarter: 2011Q1

REPORT INFORMATION
  Report Type: 
  Country: None (occurrence: None)
  Receive Date: 20110325
  Receipt Date: 20110317
  Transmission Date: 20110831
  Serious: Yes (Life-Threatening, Other)
  Sender: FDA-Public Use
  Company Number: DE-MPIJNJ-2011-00464

PATIENT

DRUGS (6)
  1. INFECTOTRIMET [Concomitant]
     Indication: PNEUMONIA
     Dosage: UNK
     Route: 048
     Dates: start: 20110128, end: 20110202
  2. DEXAMETHASONE [Concomitant]
     Dosage: 40 UNK, UNK
     Route: 042
     Dates: start: 20101122, end: 20110113
  3. CLEXANE [Concomitant]
     Indication: PULMONARY EMBOLISM
     Dosage: 60 MG, UNK
     Route: 058
     Dates: start: 20110117, end: 20110210
  4. VELCADE [Suspect]
     Dosage: 1.3 MG/M2, UNK
     Route: 042
     Dates: start: 20101122, end: 20110113
  5. VELCADE [Suspect]
     Indication: PLASMACYTOMA
     Dosage: UNK, UNK
     Route: 042
  6. DEXAMETHASONE [Concomitant]
     Dosage: UNK
     Dates: start: 20090501, end: 20091001

REACTIONS (14)
  - GASTROINTESTINAL DISORDER [None]
  - PNEUMOCYSTIS JIROVECI INFECTION [None]
  - POLYNEUROPATHY [None]
  - ORTHOPNOEA [None]
  - PNEUMONITIS [None]
  - RASH [None]
  - COUGH [None]
  - DYSPNOEA [None]
  - TACHYCARDIA [None]
  - RIB FRACTURE [None]
  - DEEP VEIN THROMBOSIS [None]
  - FALL [None]
  - PULMONARY HYPERTENSION [None]
  - CARDIAC DISORDER [None]
